FAERS Safety Report 13855712 (Version 1)
Quarter: 2017Q3

REPORT INFORMATION
  Report Type: Spontaneous
  Country: US (occurrence: US)
  Receive Date: 20170810
  Receipt Date: 20170810
  Transmission Date: 20171127
  Serious: No
  Sender: FDA-Public Use
  Company Number: US-VIFOR (INTERNATIONAL) INC.-VIT-2017-07784

PATIENT
  Sex: Male

DRUGS (10)
  1. KAYEXALATE [Concomitant]
     Active Substance: SODIUM POLYSTYRENE SULFONATE
  2. METOPROLOL TARTRATE. [Concomitant]
     Active Substance: METOPROLOL TARTRATE
  3. RENAGEL [Concomitant]
     Active Substance: SEVELAMER HYDROCHLORIDE
  4. VELTASSA [Suspect]
     Active Substance: PATIROMER
     Indication: HYPERKALAEMIA
     Route: 048
     Dates: start: 20160811
  5. LISINOPRIL. [Concomitant]
     Active Substance: LISINOPRIL
  6. METANX [Concomitant]
     Active Substance: LEVOMEFOLATE CALCIUM\METHYLCOBALAMIN\PYRIDOXAL PHOSPHATE ANHYDROUS
  7. VYTORIN [Concomitant]
     Active Substance: EZETIMIBE\SIMVASTATIN
  8. LEVEMIR [Concomitant]
     Active Substance: INSULIN DETEMIR
  9. ANDROGEL [Concomitant]
     Active Substance: TESTOSTERONE
  10. BENICAR [Concomitant]
     Active Substance: OLMESARTAN MEDOXOMIL

REACTIONS (2)
  - Abdominal discomfort [Unknown]
  - Drug dose omission [Unknown]
